FAERS Safety Report 10038314 (Version 3)
Quarter: 2014Q2

REPORT INFORMATION
  Report Type: Spontaneous
  Country: GB (occurrence: GB)
  Receive Date: 20140326
  Receipt Date: 20140407
  Transmission Date: 20141212
  Serious: Yes (Other)
  Sender: FDA-Public Use
  Company Number: GB-MERCK-1403GBR008208

PATIENT
  Age: 39 Year
  Sex: Female

DRUGS (4)
  1. ISENTRESS [Suspect]
     Indication: HIV INFECTION
     Dosage: UNK
     Route: 048
     Dates: start: 20140311
  2. RITONAVIR [Suspect]
     Indication: HIV INFECTION
     Dosage: UNK
     Dates: start: 20140311
  3. DARUNAVIR [Suspect]
     Indication: HIV INFECTION
     Dosage: UNK
     Dates: start: 20140311
  4. TENOFOVIR [Suspect]
     Indication: HIV INFECTION
     Dosage: UNK
     Dates: start: 20140311

REACTIONS (6)
  - Ventricular fibrillation [Unknown]
  - Rhabdomyolysis [Unknown]
  - Blood potassium increased [Unknown]
  - Product label issue [Unknown]
  - Wrong technique in drug usage process [Unknown]
  - Hyperkalaemia [Unknown]
